FAERS Safety Report 4832899-9 (Version None)
Quarter: 2005Q4

REPORT INFORMATION
  Report Type: 
  Country: None (occurrence: None)
  Receive Date: 20051121
  Receipt Date: 20051117
  Transmission Date: 20060501
  Serious: Yes (Life-Threatening)
  Sender: FDA-Public Use
  Company Number: 2001/06

PATIENT
  Age: 60 Year
  Sex: Female
  Weight: 72 kg

DRUGS (2)
  1. AMOXICILLINE RPG [Suspect]
     Indication: TRACHEITIS
     Dosage: 1TAB SINGLE DOSE
     Route: 048
     Dates: start: 20010227, end: 20010227
  2. ASPRO ACCEL [Suspect]
     Dosage: 2UNIT PER DAY
     Route: 048
     Dates: start: 20010227, end: 20010227

REACTIONS (4)
  - ANAPHYLACTIC SHOCK [None]
  - CIRCULATORY COLLAPSE [None]
  - DYSPNOEA [None]
  - GENERALISED ERYTHEMA [None]
